FAERS Safety Report 15301199 (Version 1)
Quarter: 2018Q3

REPORT INFORMATION
  Report Type: Spontaneous
  Country: US (occurrence: US)
  Receive Date: 20180809
  Receipt Date: 20180809
  Transmission Date: 20181010
  Serious: Yes (Hospitalization)
  Sender: FDA-Public Use
  Company Number: None

PATIENT
  Sex: Female

DRUGS (12)
  1. PREDNISONE. [Concomitant]
     Active Substance: PREDNISONE
  2. PEG 3350 [Concomitant]
     Active Substance: POLYETHYLENE GLYCOL 3350
  3. CYCLOBENZAPRINE. [Concomitant]
     Active Substance: CYCLOBENZAPRINE
  4. DULOXETINE. [Concomitant]
     Active Substance: DULOXETINE
  5. AMOXICILLIN. [Concomitant]
     Active Substance: AMOXICILLIN
  6. GABAPENTIN. [Concomitant]
     Active Substance: GABAPENTIN
  7. FLUTICASONE. [Concomitant]
     Active Substance: FLUTICASONE
  8. CHLORHEX GLU SOL [Concomitant]
  9. OMEPRAZOLE. [Concomitant]
     Active Substance: OMEPRAZOLE
  10. FOLIC ACID. [Concomitant]
     Active Substance: FOLIC ACID
  11. MELOXICAM. [Concomitant]
     Active Substance: MELOXICAM
  12. HUMIRA [Suspect]
     Active Substance: ADALIMUMAB
     Indication: RHEUMATOID ARTHRITIS
     Route: 058
     Dates: start: 20131212

REACTIONS (2)
  - Spinal operation [None]
  - Drug dose omission [None]
